FAERS Safety Report 16182504 (Version 3)
Quarter: 2019Q2

REPORT INFORMATION
  Report Type: Report from Study
  Country: IT (occurrence: IT)
  Receive Date: 20190410
  Receipt Date: 20190424
  Transmission Date: 20190711
  Serious: Yes (Death, Other)
  Sender: FDA-Public Use
  Company Number: PHHY2019IT081810

PATIENT
  Age: 68 Year
  Sex: Male
  Weight: 75 kg

DRUGS (2)
  1. PKC412 [Suspect]
     Active Substance: MIDOSTAURIN
     Indication: ACUTE MYELOID LEUKAEMIA
     Dosage: 100 MG, QD
     Route: 048
     Dates: start: 20180608
  2. PKC412 [Suspect]
     Active Substance: MIDOSTAURIN
     Dosage: 100 MG, QD
     Route: 048
     Dates: start: 20190403

REACTIONS (4)
  - Pulmonary oedema [Fatal]
  - Malaise [Fatal]
  - Cardiac failure acute [Fatal]
  - Respiratory failure [Unknown]

NARRATIVE: CASE EVENT DATE: 20190403
